FAERS Safety Report 12218493 (Version 2)
Quarter: 2016Q2

REPORT INFORMATION
  Report Type: Spontaneous
  Country: FI (occurrence: FI)
  Receive Date: 20160329
  Receipt Date: 20160408
  Transmission Date: 20160815
  Serious: Yes (Hospitalization)
  Sender: FDA-Public Use
  Company Number: FI-SA-2016SA059093

PATIENT
  Sex: Male

DRUGS (1)
  1. AUBAGIO [Suspect]
     Active Substance: TERIFLUNOMIDE
     Indication: RELAPSING-REMITTING MULTIPLE SCLEROSIS
     Route: 048
     Dates: start: 201502, end: 20150407

REACTIONS (10)
  - Complication associated with device [Unknown]
  - Organising pneumonia [Recovered/Resolved]
  - Urinary tract infection [Recovered/Resolved]
  - Scrotal abscess [Unknown]
  - Pyrexia [Recovered/Resolved]
  - Pleural effusion [Recovered/Resolved]
  - C-reactive protein increased [Recovered/Resolved]
  - Computerised tomogram abnormal [Recovered/Resolved]
  - Prostatitis [Recovered/Resolved]
  - Urine analysis abnormal [Recovered/Resolved]

NARRATIVE: CASE EVENT DATE: 201503
